FAERS Safety Report 8830072 (Version 1)
Quarter: 2012Q4

REPORT INFORMATION
  Report Type: 
  Country: JP (occurrence: JP)
  Receive Date: 20121008
  Receipt Date: 20121008
  Transmission Date: 20130627
  Serious: Yes (Hospitalization)
  Sender: FDA-Public Use
  Company Number: JP-PFIZER INC-2012228343

PATIENT
  Age: 76 Year
  Sex: Female

DRUGS (8)
  1. CELECOX [Suspect]
     Indication: BACK PAIN
     Dosage: 200 mg,Daily
     Route: 048
     Dates: start: 20120804, end: 20120818
  2. MICARDIS [Concomitant]
     Indication: HYPERTENSION
     Dosage: UNK
  3. PREDONINE [Concomitant]
     Dosage: UNK
  4. ATELEC [Concomitant]
     Dosage: UNK
  5. NICORANTA [Concomitant]
     Dosage: UNK
  6. SIMVASTATIN [Concomitant]
     Dosage: UNK
  7. FLUITRAN [Concomitant]
     Dosage: UNK
  8. BENET [Concomitant]
     Dosage: UNK

REACTIONS (1)
  - Eczema [Recovered/Resolved]
